FAERS Safety Report 7494043-1 (Version None)
Quarter: 2011Q2

REPORT INFORMATION
  Report Type: 
  Country: None (occurrence: None)
  Receive Date: 20110520
  Receipt Date: 20110513
  Transmission Date: 20111010
  Serious: No
  Sender: FDA-Public Use
  Company Number: US-PFIZER INC-2009208374

PATIENT
  Sex: Female
  Weight: 38.549 kg

DRUGS (2)
  1. AZITHROMYCIN [Suspect]
     Dosage: UNK
  2. ZITHROMAX [Suspect]
     Indication: PYREXIA
     Dosage: UNK
     Route: 048
     Dates: start: 20090403, end: 20090407

REACTIONS (2)
  - ADVERSE DRUG REACTION [None]
  - RASH [None]
